FAERS Safety Report 7552666-5 (Version None)
Quarter: 2011Q2

REPORT INFORMATION
  Report Type: 
  Country: None (occurrence: None)
  Receive Date: 20110616
  Receipt Date: 20110602
  Transmission Date: 20111010
  Serious: Yes (Hospitalization)
  Sender: FDA-Public Use
  Company Number: JP-CELGENEUS-087-21660-11060757

PATIENT
  Sex: Female

DRUGS (3)
  1. NEUPOGEN [Concomitant]
     Route: 065
  2. ABRAXANE [Suspect]
     Indication: BREAST CANCER METASTATIC
     Route: 051
     Dates: start: 20110517
  3. ABRAXANE [Suspect]
     Route: 051

REACTIONS (1)
  - CEREBRAL HAEMORRHAGE [None]
